FAERS Safety Report 7025548-5 (Version None)
Quarter: 2010Q4

REPORT INFORMATION
  Report Type: 
  Country: None (occurrence: None)
  Receive Date: 20101003
  Receipt Date: 20100922
  Transmission Date: 20110411
  Serious: Yes (Hospitalization)
  Sender: FDA-Public Use
  Company Number: PHHY2010CH62770

PATIENT
  Age: 62 Year
  Sex: Female
  Weight: 102 kg

DRUGS (4)
  1. CYCLOSPORINE [Suspect]
     Indication: POLYMYOSITIS
     Dosage: 75 MG, BID FOR 3 MONTHS
  2. PREDNISONE [Suspect]
     Indication: POLYMYOSITIS
     Dosage: 15 MG/DAY
  3. PREDNISONE [Suspect]
     Dosage: 40 MG, BID
  4. METHOTREXATE [Suspect]
     Indication: POLYMYOSITIS
     Dosage: 25 MG WEEKLY

REACTIONS (7)
  - ACUTE RESPIRATORY DISTRESS SYNDROME [None]
  - ANURIA [None]
  - CONTINUOUS HAEMODIAFILTRATION [None]
  - GLOMERULAR FILTRATION RATE DECREASED [None]
  - MECHANICAL VENTILATION [None]
  - PNEUMOCYSTIS JIROVECI PNEUMONIA [None]
  - RENAL FAILURE ACUTE [None]
